FAERS Safety Report 19139552 (Version 1)
Quarter: 2021Q2

REPORT INFORMATION
  Report Type: Spontaneous
  Country: US (occurrence: US)
  Receive Date: 20210415
  Receipt Date: 20210415
  Transmission Date: 20210717
  Serious: No
  Sender: FDA-Public Use
  Company Number: US-TERSERA THERAPEUTICS LLC-2020TRS003184

PATIENT

DRUGS (1)
  1. XERMELO [Suspect]
     Active Substance: TELOTRISTAT ETHYL
     Indication: RECTAL CANCER
     Dosage: 250 MG, TID
     Route: 048
     Dates: start: 20200925, end: 20201007

REACTIONS (4)
  - Constipation [Unknown]
  - Nausea [Unknown]
  - Therapy cessation [Unknown]
  - Vomiting [Unknown]

NARRATIVE: CASE EVENT DATE: 20201007
